FAERS Safety Report 20103313 (Version 1)
Quarter: 2021Q4

REPORT INFORMATION
  Report Type: Spontaneous
  Country: CA (occurrence: CA)
  Receive Date: 20211123
  Receipt Date: 20211123
  Transmission Date: 20220303
  Serious: Yes (Hospitalization)
  Sender: FDA-Public Use
  Company Number: CA-PFIZER INC-202101586224

PATIENT
  Age: 9 Year
  Sex: Male
  Weight: 24 kg

DRUGS (10)
  1. VINCRISTINE SULFATE [Suspect]
     Active Substance: VINCRISTINE SULFATE
     Indication: Ewing^s sarcoma
     Dosage: 1.8 MG
  2. CYCLOPHOSPHAMIDE [Suspect]
     Active Substance: CYCLOPHOSPHAMIDE
     Indication: Ewing^s sarcoma
     Dosage: 1100 MG
     Route: 041
  3. DOXORUBICIN HYDROCHLORIDE [Suspect]
     Active Substance: DOXORUBICIN HYDROCHLORIDE
     Indication: Ewing^s sarcoma
     Dosage: 35 MG
  4. DEXAMETHASONE [Concomitant]
     Active Substance: DEXAMETHASONE
  5. MESNA [Concomitant]
     Active Substance: MESNA
  6. ONDANSETRON [Concomitant]
     Active Substance: ONDANSETRON
  7. POLYETHYLENE GLYCOLS [Concomitant]
     Active Substance: POLYETHYLENE GLYCOLS
  8. PREGABALIN [Concomitant]
     Active Substance: PREGABALIN
  9. SULFAMETHOXAZOLE\TRIMETHOPRIM [Concomitant]
     Active Substance: SULFAMETHOXAZOLE\TRIMETHOPRIM
  10. ZINECARD [Concomitant]
     Active Substance: DEXRAZOXANE HYDROCHLORIDE

REACTIONS (2)
  - Chills [Recovered/Resolved]
  - Pyrexia [Recovered/Resolved]
